FAERS Safety Report 5118636-1 (Version None)
Quarter: 2006Q4

REPORT INFORMATION
  Report Type: 
  Country: None (occurrence: None)
  Receive Date: 20061002
  Receipt Date: 20060925
  Transmission Date: 20070319
  Serious: Yes (Other)
  Sender: FDA-Public Use
  Company Number: FR-GLAXOSMITHKLINE-B0439866A

PATIENT

DRUGS (1)
  1. AMOXICILLIN [Suspect]
     Indication: PREMATURE RUPTURE OF MEMBRANES

REACTIONS (1)
  - NECROTISING ENTEROCOLITIS NEONATAL [None]
